FAERS Safety Report 5089482-2 (Version None)
Quarter: 2006Q3

REPORT INFORMATION
  Report Type: 
  Country: None (occurrence: None)
  Receive Date: 20060727
  Receipt Date: 20060615
  Transmission Date: 20061208
  Serious: Yes (Other)
  Sender: FDA-Public Use
  Company Number: 2006077244

PATIENT
  Age: 48 Year
  Sex: Female

DRUGS (10)
  1. LYRICA [Suspect]
     Indication: DRUG USE FOR UNKNOWN INDICATION
     Dosage: 150 MG (75 MG, 2 IN 1 D) ORAL
     Route: 048
     Dates: start: 20050901
  2. PREDNISONE TAB [Concomitant]
  3. LUNESTA [Concomitant]
  4. ELAVIL [Concomitant]
  5. COREG [Concomitant]
  6. LASIX [Concomitant]
  7. METHOTREXATE [Concomitant]
  8. MOBIC [Concomitant]
  9. DIFLUCAN [Concomitant]
  10. ZESTRIL [Concomitant]

REACTIONS (1)
  - FEELING DRUNK [None]
